FAERS Safety Report 14853938 (Version 5)
Quarter: 2018Q2

REPORT INFORMATION
  Report Type: Spontaneous
  Country: FI (occurrence: FI)
  Receive Date: 20180507
  Receipt Date: 20180621
  Transmission Date: 20180711
  Serious: Yes (Other)
  Sender: FDA-Public Use
  Company Number: FI-ELI_LILLY_AND_COMPANY-FI201804011644

PATIENT
  Sex: Male

DRUGS (27)
  1. RISPERIDONE. [Suspect]
     Active Substance: RISPERIDONE
     Dosage: 3 MG, EACH EVENING
     Route: 065
     Dates: start: 20180107
  2. RISPERIDONE. [Suspect]
     Active Substance: RISPERIDONE
     Dosage: 3 MG, EACH EVENING
     Route: 065
     Dates: start: 20180115
  3. ZYPREXA [Suspect]
     Active Substance: OLANZAPINE
     Dosage: 7.5 MG, UNKNOWN
     Route: 065
     Dates: start: 20180131, end: 20180203
  4. RISPERIDONE. [Suspect]
     Active Substance: RISPERIDONE
     Dosage: 3 MG, BID
     Route: 065
     Dates: start: 20180107
  5. RISPERIDONE. [Suspect]
     Active Substance: RISPERIDONE
     Dosage: 2 MG, EACH EVENING
     Route: 065
     Dates: start: 20180124
  6. ATIVAN [Suspect]
     Active Substance: LORAZEPAM
     Dosage: 2 MG, PRN
     Route: 065
     Dates: start: 20180129
  7. ATIVAN [Suspect]
     Active Substance: LORAZEPAM
     Dosage: 2 MG, TID
     Route: 065
     Dates: start: 20180104
  8. DIAPAM                             /00017001/ [Suspect]
     Active Substance: DIAZEPAM
     Dosage: 15 MG, DAILY
     Route: 065
  9. ATIVAN [Suspect]
     Active Substance: LORAZEPAM
     Dosage: 3 MG, TID
     Route: 065
     Dates: start: 20180107
  10. RISPERIDONE. [Suspect]
     Active Substance: RISPERIDONE
     Dosage: 4 MG, EACH EVENING
     Route: 065
     Dates: start: 20180114
  11. SERENASE                           /00027401/ [Suspect]
     Active Substance: HALOPERIDOL
     Indication: HALLUCINATION
     Dosage: 5 MG, PRN
     Route: 065
     Dates: start: 20180126
  12. RISPERIDONE. [Suspect]
     Active Substance: RISPERIDONE
     Dosage: 1 MG, UNKNOWN
     Route: 065
     Dates: start: 20180127, end: 20180129
  13. DIAPAM                             /00017001/ [Suspect]
     Active Substance: DIAZEPAM
     Indication: PRODUCT USED FOR UNKNOWN INDICATION
     Dosage: 10 MG, TID
     Route: 065
     Dates: start: 20180126
  14. RISPERIDONE. [Suspect]
     Active Substance: RISPERIDONE
     Dosage: 2 MG, EACH EVENING
     Route: 065
     Dates: start: 20180102
  15. RISPERIDONE. [Suspect]
     Active Substance: RISPERIDONE
     Dosage: 4 MG, BID
     Route: 065
     Dates: start: 20180114
  16. DIAPAM                             /00017001/ [Suspect]
     Active Substance: DIAZEPAM
     Dosage: 20 MG, UNKNOWN
     Route: 065
     Dates: start: 20180129, end: 20180201
  17. LEPONEX [Suspect]
     Active Substance: CLOZAPINE
     Indication: HALLUCINATION
     Dosage: UNK UNK, UNKNOWN
     Route: 065
     Dates: start: 20180201
  18. SERENASE                           /00027401/ [Suspect]
     Active Substance: HALOPERIDOL
     Dosage: 2.5 MG, BID
     Route: 065
     Dates: start: 20180129
  19. ATIVAN [Suspect]
     Active Substance: LORAZEPAM
     Indication: HALLUCINATION
     Dosage: 2 MG, PRN
     Route: 065
     Dates: start: 20180104
  20. ATIVAN [Suspect]
     Active Substance: LORAZEPAM
     Dosage: 3 MG, PRN
     Route: 065
     Dates: start: 20180107
  21. ATIVAN [Suspect]
     Active Substance: LORAZEPAM
     Dosage: 2 MG, PRN
     Route: 065
     Dates: start: 20180201
  22. ZYPREXA [Suspect]
     Active Substance: OLANZAPINE
     Dosage: 2 MG, TID
     Route: 065
     Dates: start: 20180201
  23. ATIVAN [Suspect]
     Active Substance: LORAZEPAM
     Dosage: 4 MG, PRN
     Route: 065
     Dates: start: 20180126
  24. ZYPREXA [Suspect]
     Active Substance: OLANZAPINE
     Indication: PSYCHOTIC SYMPTOM
     Dosage: 10 MG, DAILY
     Route: 065
     Dates: start: 20180124
  25. ZYPREXA [Suspect]
     Active Substance: OLANZAPINE
     Dosage: 15 MG, UNKNOWN
     Route: 065
     Dates: start: 20180126
  26. ZYPREXA [Suspect]
     Active Substance: OLANZAPINE
     Dosage: UNK, UNKNOWN
     Route: 065
     Dates: start: 20180203
  27. RISPERIDONE. [Suspect]
     Active Substance: RISPERIDONE
     Indication: PSYCHOTIC SYMPTOM
     Dosage: 1 MG, EACH EVENING
     Route: 065
     Dates: start: 20171231

REACTIONS (5)
  - Dementia with Lewy bodies [Recovering/Resolving]
  - Balance disorder [Recovering/Resolving]
  - Hallucination [Recovering/Resolving]
  - Parkinsonism [Recovering/Resolving]
  - Vascular dementia [Recovering/Resolving]
